FAERS Safety Report 5190942-4 (Version None)
Quarter: 2006Q4

REPORT INFORMATION
  Report Type: 
  Country: None (occurrence: None)
  Receive Date: 20061222
  Receipt Date: 20060913
  Transmission Date: 20070319
  Serious: Yes (Death)
  Sender: FDA-Public Use
  Company Number: JP-BOEHRINGER INGELHEIM PHARMACEUTICALS, INC.-2006-BP-10729NB

PATIENT
  Age: 52 Year
  Sex: Male

DRUGS (5)
  1. MEXILETINE HYDROCHLORIDE [Suspect]
     Indication: ADVERSE EVENT
     Route: 048
  2. DILTIAZEM HYDROCHLORIDE [Concomitant]
     Route: 048
  3. ASPIRIN [Concomitant]
     Route: 048
  4. CIMETIDINE [Concomitant]
     Route: 048
  5. CIPRALAN [Concomitant]
     Route: 048

REACTIONS (1)
  - VENTRICULAR FIBRILLATION [None]
